FAERS Safety Report 15855131 (Version 1)
Quarter: 2019Q1

REPORT INFORMATION
  Report Type: Spontaneous
  Country: US (occurrence: US)
  Receive Date: 20190122
  Receipt Date: 20190122
  Transmission Date: 20190417
  Serious: Yes (Other)
  Sender: FDA-Public Use
  Company Number: US-ALLERGAN-1845295US

PATIENT
  Age: 41 Year
  Sex: Female
  Weight: 64.5 kg

DRUGS (6)
  1. INVANZ [Suspect]
     Active Substance: ERTAPENEM SODIUM
     Indication: URINARY TRACT INFECTION
     Dosage: 1 G, QD
     Route: 042
     Dates: start: 20180821, end: 20180823
  2. PF-06460031 / PLACEBO (RIVIPANSEL) [Suspect]
     Active Substance: RIVIPANSEL
     Indication: SICKLE CELL ANAEMIA WITH CRISIS
     Dosage: 840 MG, Q12H
     Route: 042
     Dates: start: 20180821, end: 20180823
  3. FOSFOMYCIN TROMETHAMINE - BP [Suspect]
     Active Substance: FOSFOMYCIN TROMETHAMINE
     Indication: URINARY TRACT INFECTION
     Dosage: 3 G, QD
     Route: 048
     Dates: start: 20180824, end: 20180827
  4. NITROFURANTOIN. [Concomitant]
     Active Substance: NITROFURANTOIN
     Indication: URINARY TRACT INFECTION
     Dosage: UNK
     Dates: start: 20180816, end: 20180820
  5. CEPHALEXIN. [Suspect]
     Active Substance: CEPHALEXIN
     Indication: URINARY TRACT INFECTION
     Dosage: 500 MG, BID
     Route: 048
     Dates: start: 20180821, end: 20180821
  6. LIDOCAINE/DIPHENHYDRAMINE/NYSTATIN [Concomitant]
     Indication: ORAL PAIN
     Dosage: 15 ML, Q6HR, PRN
     Route: 048
     Dates: start: 20180823

REACTIONS (5)
  - Rash [Recovered/Resolved]
  - Sickle cell anaemia with crisis [None]
  - Rash papular [None]
  - Intentional product misuse [Unknown]
  - Sickle cell anaemia with crisis [Recovering/Resolving]

NARRATIVE: CASE EVENT DATE: 20180828
